FAERS Safety Report 4972657-8 (Version None)
Quarter: 2006Q1

REPORT INFORMATION
  Report Type: 
  Country: None (occurrence: None)
  Receive Date: 20060216
  Receipt Date: 20050929
  Transmission Date: 20060701
  Serious: Yes (Life-Threatening, Hospitalization)
  Sender: FDA-Public Use
  Company Number: 200509IM000566

PATIENT
  Age: 69 Year
  Sex: Male
  Weight: 96.1626 kg

DRUGS (22)
  1. BLINDED THERAPY (INTERFERON GAMMA-1B) [Suspect]
     Indication: IDIOPATHIC PULMONARY FIBROSIS
     Dosage: 1 ML, TIW, SUBCUTANEOUS
     Route: 058
     Dates: start: 20040920, end: 20050927
  2. NEXIUM [Concomitant]
  3. TRICOR [Concomitant]
  4. TOPROL-XL [Concomitant]
  5. PLAVIX [Concomitant]
  6. PAXIL [Concomitant]
  7. ASPIRIN [Concomitant]
  8. PROCARDIA XL [Concomitant]
  9. PRAVACHOL [Concomitant]
  10. NITROGLYCERIN [Concomitant]
  11. VITAMIN E [Concomitant]
  12. ACETAMINOPHEN [Concomitant]
  13. ADVAIR DISKUS 100/50 [Concomitant]
  14. ZOLOFT [Concomitant]
  15. CELEBREX [Concomitant]
  16. NASONEX [Concomitant]
  17. SEPTRA DS [Concomitant]
  18. AMBIEN [Concomitant]
  19. FLONASE [Concomitant]
  20. CIPRO [Concomitant]
  21. PREDNISONE TAB [Concomitant]
  22. TUSSIONEX [Concomitant]

REACTIONS (1)
  - PULMONARY HYPERTENSION [None]
